FAERS Safety Report 22388951 (Version 1)
Quarter: 2023Q2

REPORT INFORMATION
  Report Type: Spontaneous
  Country: US (occurrence: None)
  Receive Date: 20230530
  Receipt Date: 20230530
  Transmission Date: 20230722
  Serious: Yes (Other)
  Sender: FDA-Public Use
  Company Number: None

PATIENT
  Age: 58 Year
  Sex: Male

DRUGS (1)
  1. AUSTEDO [Suspect]
     Active Substance: DEUTETRABENAZINE
     Indication: Tardive dyskinesia
     Dosage: FREQUENCY : TWICE A DAY;?
     Route: 048
     Dates: start: 20210215

REACTIONS (4)
  - Mood altered [None]
  - Crying [None]
  - Anxiety [None]
  - Depression [None]
